FAERS Safety Report 6175329-X (Version None)
Quarter: 2009Q2

REPORT INFORMATION
  Report Type: 
  Country: None (occurrence: None)
  Receive Date: 20090429
  Receipt Date: 20090417
  Transmission Date: 20091009
  Serious: Yes (Other)
  Sender: FDA-Public Use
  Company Number: 234315K09USA

PATIENT
  Age: 53 Year
  Sex: Female

DRUGS (5)
  1. REBIF [Suspect]
     Indication: MULTIPLE SCLEROSIS
     Dosage: 44 MCG, 3 IN 1 WEEKS, SUBCUTANEOUS
     Route: 058
     Dates: start: 20080725
  2. SOLU-MEDROL [Concomitant]
  3. DAYQUIL (BENADRYL COLD AND FLU) [Concomitant]
  4. FENTANYL [Concomitant]
  5. FIORICET (AXOTAL) [Concomitant]

REACTIONS (1)
  - BREAST CANCER [None]
